FAERS Safety Report 9736728 (Version 4)
Quarter: 2014Q1

REPORT INFORMATION
  Report Type: Report from Study
  Country: DE (occurrence: DE)
  Receive Date: 20131206
  Receipt Date: 20140304
  Transmission Date: 20141002
  Serious: Yes (Death, Life-Threatening, Hospitalization, Disabling, Other)
  Sender: FDA-Public Use
  Company Number: PHHY2013DE139865

PATIENT
  Sex: Male
  Weight: 61 kg

DRUGS (11)
  1. ICL670A [Suspect]
     Indication: IRON OVERLOAD
     Dosage: 250 MG, DAILY
     Route: 048
     Dates: start: 20101119, end: 20110128
  2. ICL670A [Suspect]
     Dosage: 500 MG, DAILY
     Route: 048
     Dates: start: 20110129, end: 20111108
  3. ICL670A [Suspect]
     Dosage: 1000 MG, QD
     Route: 048
     Dates: start: 20111109, end: 201202
  4. BISOPROLOL [Concomitant]
     Dosage: 5 MG, PER DAY
  5. ASS [Concomitant]
     Dosage: 100 MG, PER DAY
  6. GALACORDIN FORTE [Concomitant]
     Dosage: 105 MG, PER DAY
  7. VITAMIN D3 [Concomitant]
     Dosage: 0.025 MG, PER DAY
  8. KREON [Concomitant]
     Dosage: 2500 MG, PER DAY
  9. SPIRONOLACTON DURA [Concomitant]
     Dosage: 50 MG, PER DAY
  10. VITAMIN B6 [Concomitant]
     Dosage: 600 MG, PER DAY
  11. CALCIUM ^VERLA^ [Concomitant]
     Dosage: 600 MG, UNK

REACTIONS (4)
  - Glioblastoma [Fatal]
  - Memory impairment [Fatal]
  - Autoimmune thyroiditis [Fatal]
  - Hypothyroidism [Not Recovered/Not Resolved]
